FAERS Safety Report 5722132-8 (Version None)
Quarter: 2008Q2

REPORT INFORMATION
  Report Type: 
  Country: None (occurrence: None)
  Receive Date: 20080429
  Receipt Date: 20070618
  Transmission Date: 20081010
  Serious: No
  Sender: FDA-Public Use
  Company Number: US-ASTRAZENECA-2007UW14565

PATIENT
  Age: 43 Year
  Sex: Female
  Weight: 71.7 kg

DRUGS (5)
  1. NEXIUM [Suspect]
     Indication: GASTROOESOPHAGEAL REFLUX DISEASE
     Route: 048
     Dates: start: 20010101
  2. MOTRIN [Concomitant]
  3. FLEXEROL SHOTS [Concomitant]
  4. MEDROL [Concomitant]
  5. THYROID TAB [Concomitant]

REACTIONS (2)
  - FUNGAL INFECTION [None]
  - URINARY TRACT INFECTION [None]
